FAERS Safety Report 10164523 (Version 1)
Quarter: 2014Q2

REPORT INFORMATION
  Report Type: Spontaneous
  Country: US (occurrence: US)
  Receive Date: 20140510
  Receipt Date: 20140510
  Transmission Date: 20141212
  Serious: No
  Sender: FDA-Public Use
  Company Number: US-BRISTOL-MYERS SQUIBB COMPANY-20089884

PATIENT
  Age: 40 Year
  Sex: Male
  Weight: 105.67 kg

DRUGS (2)
  1. BYDUREON [Suspect]
     Indication: TYPE 1 DIABETES MELLITUS
  2. METFORMIN [Concomitant]

REACTIONS (3)
  - Off label use [Unknown]
  - Underdose [Unknown]
  - Product quality issue [Unknown]
